FAERS Safety Report 6282189-5 (Version None)
Quarter: 2009Q3

REPORT INFORMATION
  Report Type: 
  Country: None (occurrence: None)
  Receive Date: 20090724
  Receipt Date: 20090714
  Transmission Date: 20100115
  Serious: Yes (Hospitalization)
  Sender: FDA-Public Use
  Company Number: KR-JNJFOC-20090700605

PATIENT
  Sex: Female
  Weight: 51.5 kg

DRUGS (45)
  1. GOLIMUMAB [Suspect]
     Route: 058
  2. GOLIMUMAB [Suspect]
     Route: 058
  3. GOLIMUMAB [Suspect]
     Route: 058
  4. GOLIMUMAB [Suspect]
     Route: 058
  5. GOLIMUMAB [Suspect]
     Route: 058
  6. GOLIMUMAB [Suspect]
     Route: 058
  7. GOLIMUMAB [Suspect]
     Route: 058
  8. GOLIMUMAB [Suspect]
     Route: 058
  9. GOLIMUMAB [Suspect]
     Route: 058
  10. GOLIMUMAB [Suspect]
     Route: 058
  11. GOLIMUMAB [Suspect]
     Route: 058
  12. GOLIMUMAB [Suspect]
     Route: 058
  13. GOLIMUMAB [Suspect]
     Route: 058
  14. GOLIMUMAB [Suspect]
     Route: 058
  15. GOLIMUMAB [Suspect]
     Route: 058
  16. GOLIMUMAB [Suspect]
     Route: 058
  17. GOLIMUMAB [Suspect]
     Indication: RHEUMATOID ARTHRITIS
     Route: 058
  18. PLACEBO [Suspect]
     Route: 058
  19. PLACEBO [Suspect]
     Route: 058
  20. PLACEBO [Suspect]
     Route: 058
  21. PLACEBO [Suspect]
     Route: 058
  22. PLACEBO [Suspect]
     Route: 058
  23. PLACEBO [Suspect]
     Route: 058
  24. PLACEBO [Suspect]
     Route: 058
  25. PLACEBO [Suspect]
     Route: 058
  26. PLACEBO [Suspect]
     Route: 058
  27. PLACEBO [Suspect]
     Route: 058
  28. PLACEBO [Suspect]
     Route: 058
  29. PLACEBO [Suspect]
     Route: 058
  30. PLACEBO [Suspect]
     Indication: RHEUMATOID ARTHRITIS
     Route: 058
  31. METHOTREXATE [Suspect]
     Route: 048
  32. METHOTREXATE [Suspect]
     Route: 048
  33. METHOTREXATE [Suspect]
     Route: 048
  34. METHOTREXATE [Suspect]
     Route: 048
  35. METHOTREXATE [Suspect]
     Route: 048
  36. METHOTREXATE [Suspect]
     Route: 048
  37. METHOTREXATE [Suspect]
     Indication: RHEUMATOID ARTHRITIS
     Route: 048
  38. ADCAL [Concomitant]
     Route: 048
  39. SOMALGEN [Concomitant]
     Indication: RHEUMATOID ARTHRITIS
     Route: 048
  40. METHYLPREDNISOLONE [Concomitant]
     Indication: RHEUMATOID ARTHRITIS
     Route: 048
  41. FOLIN [Concomitant]
     Indication: VITAMIN SUPPLEMENTATION
     Route: 048
  42. METHOTREXATE [Concomitant]
     Route: 048
  43. NIFERON CR [Concomitant]
     Indication: HYPERTENSION
     Route: 048
  44. ACTONEL [Concomitant]
     Route: 048
  45. EUPATILIN [Concomitant]
     Indication: GASTROINTESTINAL DISORDER THERAPY
     Route: 048

REACTIONS (1)
  - ELECTROLYTE IMBALANCE [None]
